FAERS Safety Report 6290890-2 (Version None)
Quarter: 2009Q3

REPORT INFORMATION
  Report Type: 
  Country: None (occurrence: None)
  Receive Date: 20090728
  Receipt Date: 20090728
  Transmission Date: 20100115
  Serious: Yes (Other)
  Sender: FDA-Public Use
  Company Number: None

PATIENT

DRUGS (1)
  1. VYVANSE [Suspect]
     Dates: start: 20081201, end: 20090610

REACTIONS (2)
  - ALOPECIA [None]
  - WEIGHT DECREASED [None]
